FAERS Safety Report 14343040 (Version 2)
Quarter: 2018Q1

REPORT INFORMATION
  Report Type: Report from Study
  Country: US (occurrence: US)
  Receive Date: 20180102
  Receipt Date: 20180115
  Transmission Date: 20180509
  Serious: Yes (Other)
  Sender: FDA-Public Use
  Company Number: US-BAYER-2017-247296

PATIENT
  Age: 86 Year
  Sex: Male
  Weight: 70.31 kg

DRUGS (16)
  1. PEPCID [Concomitant]
     Active Substance: FAMOTIDINE
     Indication: GASTRIC DISORDER
     Dosage: 20 MG, QD
     Route: 065
  2. LORAZEPAM. [Concomitant]
     Active Substance: LORAZEPAM
     Indication: ANXIETY
     Dosage: .5 MG, BID
     Route: 065
     Dates: start: 2016
  3. MECLIZINE [Concomitant]
     Active Substance: MECLIZINE HYDROCHLORIDE
     Indication: LABYRINTHITIS
     Dosage: UNK, PRN
     Route: 065
  4. LYSINE [Concomitant]
     Active Substance: LYSINE
     Indication: NUTRITIONAL SUPPLEMENTATION
     Dosage: UNK
     Route: 065
  5. VITAMINE E VITALIA [Concomitant]
     Indication: NUTRITIONAL SUPPLEMENTATION
     Dosage: UNK
     Route: 065
  6. BAYER ASPIRIN [Suspect]
     Active Substance: ASPIRIN
     Indication: PRODUCT USED FOR UNKNOWN INDICATION
     Dosage: UNK, QD
     Route: 065
  7. FLOMAX [Concomitant]
     Active Substance: TAMSULOSIN HYDROCHLORIDE
     Indication: PROSTATIC SPECIFIC ANTIGEN INCREASED
     Dosage: 0.4 MG, QD
     Route: 065
  8. BILBERRY [Concomitant]
     Active Substance: BILBERRY
     Indication: NUTRITIONAL SUPPLEMENTATION
     Dosage: UNK
     Route: 065
  9. XARELTO [Suspect]
     Active Substance: RIVAROXABAN
     Indication: ATRIAL FIBRILLATION
     Dosage: 20 MG, QD
     Route: 048
  10. METOPROLOL. [Concomitant]
     Active Substance: METOPROLOL
     Dosage: 25 MG, BID
     Route: 065
  11. GLUCOSAMINE [Concomitant]
     Active Substance: GLUCOSAMINE
     Indication: NUTRITIONAL SUPPLEMENTATION
     Dosage: UNK
     Route: 065
  12. XARELTO [Suspect]
     Active Substance: RIVAROXABAN
     Indication: CEREBROVASCULAR ACCIDENT PROPHYLAXIS
  13. GARLIC. [Concomitant]
     Active Substance: GARLIC
     Indication: NUTRITIONAL SUPPLEMENTATION
     Dosage: UNK
     Route: 065
  14. HYDROCHLOROTHIAZIDE. [Concomitant]
     Active Substance: HYDROCHLOROTHIAZIDE
     Indication: DIURETIC THERAPY
     Dosage: 25 MG, QD
     Route: 065
  15. GINKGO [Concomitant]
     Active Substance: GINKGO
     Indication: NUTRITIONAL SUPPLEMENTATION
     Dosage: UNK
     Route: 065
  16. GINGER. [Concomitant]
     Active Substance: GINGER
     Indication: NUTRITIONAL SUPPLEMENTATION
     Dosage: UNK
     Route: 065

REACTIONS (8)
  - Haemarthrosis [Not Recovered/Not Resolved]
  - Weight decreased [Unknown]
  - Subcutaneous haematoma [Recovered/Resolved]
  - Migraine [Unknown]
  - Muscular weakness [Not Recovered/Not Resolved]
  - Fall [Recovered/Resolved]
  - Transient ischaemic attack [Unknown]
  - Anxiety [Unknown]

NARRATIVE: CASE EVENT DATE: 2016
